APPROVED DRUG PRODUCT: BRINZOLAMIDE
Active Ingredient: BRINZOLAMIDE
Strength: 1%
Dosage Form/Route: SUSPENSION/DROPS;OPHTHALMIC
Application: A204884 | Product #001 | TE Code: AB
Applicant: BAUSCH AND LOMB INC
Approved: Aug 18, 2021 | RLD: No | RS: No | Type: RX